FAERS Safety Report 5365376-X (Version None)
Quarter: 2007Q2

REPORT INFORMATION
  Report Type: 
  Country: None (occurrence: None)
  Receive Date: 20070621
  Receipt Date: 20070612
  Transmission Date: 20071010
  Serious: Yes (Hospitalization)
  Sender: FDA-Public Use
  Company Number: US-ROCHE-502018

PATIENT
  Age: 30 Year
  Sex: Female

DRUGS (2)
  1. XELODA [Suspect]
     Indication: BREAST CANCER
     Dosage: DOSAGE FORM IS ^PILLS^
     Route: 048
  2. TYKERB [Concomitant]
     Dosage: DOSE FORM IS ^PILLS^

REACTIONS (11)
  - BURNING SENSATION [None]
  - CYSTITIS [None]
  - DIARRHOEA HAEMORRHAGIC [None]
  - DYSPHAGIA [None]
  - OEDEMA PERIPHERAL [None]
  - PAIN IN EXTREMITY [None]
  - PLANTAR ERYTHEMA [None]
  - PYREXIA [None]
  - STOMATITIS [None]
  - THROAT TIGHTNESS [None]
  - TINNITUS [None]
